FAERS Safety Report 9091603 (Version 1)
Quarter: 2013Q1

REPORT INFORMATION
  Report Type: Report from Study
  Country: US (occurrence: US)
  Receive Date: 20130131
  Receipt Date: 20130131
  Transmission Date: 20140127
  Serious: No
  Sender: FDA-Public Use
  Company Number: US-ABBOTT-12P-163-1003206-00

PATIENT
  Age: 48 Year
  Sex: Male

DRUGS (5)
  1. HUMIRA [Suspect]
     Indication: RHEUMATOID ARTHRITIS
     Dates: start: 20121016
  2. METHOTREXATE SODIUM [Suspect]
     Indication: PRODUCT USED FOR UNKNOWN INDICATION
     Dosage: DOSE INCREASED
  3. METHOTREXATE SODIUM [Suspect]
     Dosage: 2.5 MG 10 PILLS ONCE A WEEK
  4. KLONOPIN [Concomitant]
     Indication: SLEEP DISORDER THERAPY
  5. KLONOPIN [Concomitant]
     Indication: TREMOR

REACTIONS (2)
  - Lacrimation increased [Unknown]
  - Swollen tear duct [Not Recovered/Not Resolved]
